FAERS Safety Report 23635910 (Version 1)
Quarter: 2024Q1

REPORT INFORMATION
  Report Type: Spontaneous
  Country: US (occurrence: US)
  Receive Date: 20240315
  Receipt Date: 20240315
  Transmission Date: 20240410
  Serious: No
  Sender: FDA-Public Use
  Company Number: US-OPELLA-2024OHG008005

PATIENT
  Sex: Female

DRUGS (1)
  1. SELSUN BLUE MEDICATED [Suspect]
     Active Substance: SELENIUM SULFIDE
     Indication: Product used for unknown indication
     Dosage: USE IT FOR UP TO TWO WEEKS EVERY DAY, OR MAYBE TWICE A WEEK. LATER SHE TAPERED TO 3 TIMES A WEEK.

REACTIONS (2)
  - Pruritus [Unknown]
  - Pain of skin [Unknown]
